FAERS Safety Report 8361077-4 (Version None)
Quarter: 2012Q2

REPORT INFORMATION
  Report Type: 
  Country: None (occurrence: None)
  Receive Date: 20120515
  Receipt Date: 20120508
  Transmission Date: 20120825
  Serious: Yes (Hospitalization)
  Sender: FDA-Public Use
  Company Number: US-BAYER-2011-096065

PATIENT
  Age: 23 Year
  Sex: Female
  Weight: 79.365 kg

DRUGS (6)
  1. YAZ [Suspect]
  2. YAZ [Suspect]
  3. FLINTSTONES [Concomitant]
  4. YAZ [Suspect]
     Indication: ACNE
     Dosage: UNK
     Dates: start: 20081001, end: 20090901
  5. YAZ [Suspect]
  6. YAZ [Suspect]

REACTIONS (8)
  - CHOLECYSTITIS ACUTE [None]
  - EMOTIONAL DISTRESS [None]
  - ANXIETY [None]
  - PAIN [None]
  - INJURY [None]
  - GALLBLADDER INJURY [None]
  - GENERAL PHYSICAL HEALTH DETERIORATION [None]
  - SCAR [None]
